FAERS Safety Report 4963604-3 (Version None)
Quarter: 2006Q1

REPORT INFORMATION
  Report Type: 
  Country: None (occurrence: None)
  Receive Date: 20060330
  Receipt Date: 20060321
  Transmission Date: 20060701
  Serious: Yes (Hospitalization, Other)
  Sender: FDA-Public Use
  Company Number: 2006019251

PATIENT
  Age: 67 Year
  Sex: Male

DRUGS (7)
  1. LIPITOR [Suspect]
     Indication: ILL-DEFINED DISORDER
     Dosage: 20 MG (20 MG, 1 IN 1 D), ORAL
     Route: 048
     Dates: start: 20001101, end: 20060101
  2. WARFARIN SODIUM [Concomitant]
  3. TEGRETOL [Concomitant]
  4. ALLOPUR (ALLPURINOL) [Concomitant]
  5. EMCONCOR (BISOPROLOL) [Concomitant]
  6. LASIX RETARD (FUROSEMIDE) [Concomitant]
  7. VITAMIN B-12 [Concomitant]

REACTIONS (30)
  - ABDOMINAL PAIN UPPER [None]
  - ALCOHOL POISONING [None]
  - ANION GAP INCREASED [None]
  - ATRIAL FIBRILLATION [None]
  - BLOOD CHLORIDE DECREASED [None]
  - COLD SWEAT [None]
  - CONDITION AGGRAVATED [None]
  - DEHYDRATION [None]
  - DYSPNOEA [None]
  - ECCHYMOSIS [None]
  - FLUID INTAKE REDUCED [None]
  - GASTROOESOPHAGEAL REFLUX DISEASE [None]
  - HAEMARTHROSIS [None]
  - HAEMATEMESIS [None]
  - HAEMOGLOBIN DECREASED [None]
  - HIATUS HERNIA [None]
  - HYPOTENSION [None]
  - INTERNATIONAL NORMALISED RATIO DECREASED [None]
  - INTERNATIONAL NORMALISED RATIO INCREASED [None]
  - METABOLIC ACIDOSIS [None]
  - METABOLIC ALKALOSIS [None]
  - OESOPHAGITIS [None]
  - ORAL INTAKE REDUCED [None]
  - PALLOR [None]
  - PERIPHERAL COLDNESS [None]
  - RENAL FAILURE ACUTE [None]
  - RESPIRATORY DISORDER [None]
  - RHABDOMYOLYSIS [None]
  - TACHYPNOEA [None]
  - URINARY TRACT DISORDER [None]
